FAERS Safety Report 16252431 (Version 2)
Quarter: 2020Q3

REPORT INFORMATION
  Report Type: Spontaneous
  Country: US (occurrence: US)
  Receive Date: 20190429
  Receipt Date: 20200917
  Transmission Date: 20201102
  Serious: Yes (Hospitalization, Disabling)
  Sender: FDA-Public Use
  Company Number: US-PFIZER INC-2016531189

PATIENT
  Age: 58 Year
  Sex: Female
  Weight: 79 kg

DRUGS (24)
  1. LYRICA [Suspect]
     Active Substance: PREGABALIN
     Indication: LUMBAR SPINAL STENOSIS
     Dosage: 75 MG, 1X/DAY
  2. LYRICA [Suspect]
     Active Substance: PREGABALIN
     Indication: CERVICAL RADICULOPATHY
     Dosage: 75 MG, 2X/DAY (1 CAP TWO TIMES A DAY FOR 90 DAYS)
     Route: 048
     Dates: start: 2000
  3. GABAPENTIN. [Concomitant]
     Active Substance: GABAPENTIN
     Dosage: 300 MG, 2X/DAY
     Route: 048
     Dates: start: 20110214
  4. NAMENDA [Concomitant]
     Active Substance: MEMANTINE HYDROCHLORIDE
     Dosage: 10 MG, 1X/DAY (TAKE 1 TABLET BY MOUTH DAILY AT BEDTIME)
     Route: 048
     Dates: start: 20140723
  5. RANITIDINE HCL [Concomitant]
     Active Substance: RANITIDINE HYDROCHLORIDE
     Dosage: 150 MG, DAILY (TAKE 1 TABLET BY MOUTH DAILY AT BEDTIME )
     Route: 048
     Dates: start: 20150311
  6. XIIDRA [Concomitant]
     Active Substance: LIFITEGRAST
     Dosage: 1 DROP, 2X/DAY
     Route: 047
     Dates: start: 20170206
  7. BREO ELLIPTA [Concomitant]
     Active Substance: FLUTICASONE FUROATE\VILANTEROL TRIFENATATE
     Dosage: UNK, 1X/DAY (FLUTICASONE FUROATE: 200 MCG, VILANTEROL TRIFENATATE: 25 MCG)
  8. METFORMIN HCL [Concomitant]
     Active Substance: METFORMIN HYDROCHLORIDE
     Dosage: 500 MG, DAILY (1 TABLET BY MOUTH EVERY DAY WITH FOOD)
     Route: 048
     Dates: start: 20150612
  9. PRAVASTATIN SODIUM. [Concomitant]
     Active Substance: PRAVASTATIN SODIUM
     Dosage: 40 MG, DAILY (TAKE 1 TABLET BY MOUTH DAILY AT BEDTIME )
     Route: 048
     Dates: start: 20110512
  10. VENOFER [Concomitant]
     Active Substance: IRON SUCROSE
     Dosage: UNK (300 MG EVERY 2 WEEKS FOR 3 DOSES)
     Route: 042
     Dates: start: 20170110
  11. VITAMIN B12 [Concomitant]
     Active Substance: CYANOCOBALAMIN
     Dosage: 1000 UG, DAILY (TAKE 1 TABLET DAILY AS DIRECTED)
     Route: 048
  12. OMEPRAZOLE. [Concomitant]
     Active Substance: OMEPRAZOLE
     Dosage: 40 MG, 1X/DAY (TAKE ONE CAPSULE BY MOUTH DAILY IN THE EVERY EVENING )
     Route: 048
     Dates: start: 20120126
  13. SPIRIVA [Concomitant]
     Active Substance: TIOTROPIUM BROMIDE MONOHYDRATE
     Dosage: 18 UG, 1X/DAY
     Dates: start: 20110414
  14. OMEPRAZOLE. [Concomitant]
     Active Substance: OMEPRAZOLE
     Dosage: 20 MG, 1X/DAY (TAKE ONE CAPSULE BY MOUTH DAILY IN THE EVENING)
     Route: 048
     Dates: start: 20140723
  15. VENTOLIN HFA [Concomitant]
     Active Substance: ALBUTEROL SULFATE
     Dosage: 1 DF, AS NEEDED (INHALE 1 PUFF BY MOUTH EVERY 4 HOURS AS NEEDED)
     Dates: start: 20160518
  16. NITROGLYCERINE [Concomitant]
     Active Substance: NITROGLYCERIN
     Indication: CHEST PAIN
     Dosage: 0.4 MG, AS NEEDED (PLACE 1 TABLET UNDER TONGUE EVERY 5 MIN AS NEEDED)
     Route: 060
     Dates: start: 20170119
  17. ACETAMINOPHEN;OXYCODONE HYDROCHLORIDE [Concomitant]
     Active Substance: ACETAMINOPHEN\OXYCODONE HYDROCHLORIDE
     Dosage: UNK (OXYCODONE: 5 MG/ACETAMINOPHEN:325 MG, TAKE 1 TABLET OTHER 6 TABLETS/DAY)
     Route: 048
     Dates: start: 20140723
  18. VITAMIN D3 [Concomitant]
     Active Substance: CHOLECALCIFEROL
     Dosage: 1000 IU, DAILY ((TAKE 1 CAPSULE DAILY))
     Route: 048
  19. LYRICA [Suspect]
     Active Substance: PREGABALIN
     Indication: NERVE ROOT INJURY CERVICAL
  20. DULOXETINE HCL [Concomitant]
     Active Substance: DULOXETINE HYDROCHLORIDE
     Dosage: 60 MG, DAILY
     Route: 048
     Dates: start: 20110915
  21. GABAPENTIN. [Concomitant]
     Active Substance: GABAPENTIN
     Dosage: 300 MG, 2X/DAY
     Route: 048
     Dates: start: 20160317
  22. OXYGEN. [Concomitant]
     Active Substance: OXYGEN
     Dosage: UNK (2 LITRES WITH BOTH ACTIVITY AND REST 24 HRS/DAY)
  23. ASPIRIN. [Concomitant]
     Active Substance: ASPIRIN
     Dosage: 81 MG, 1X/DAY
  24. ROPINIROLE HCL [Concomitant]
     Active Substance: ROPINIROLE HYDROCHLORIDE
     Dosage: 1 MG, 1X/DAY
     Route: 048
     Dates: start: 20161017

REACTIONS (4)
  - Burning sensation [Not Recovered/Not Resolved]
  - Neck deformity [Unknown]
  - Mental disorder [Not Recovered/Not Resolved]
  - Intentional product use issue [Unknown]

NARRATIVE: CASE EVENT DATE: 2000
